FAERS Safety Report 22256911 (Version 11)
Quarter: 2025Q2

REPORT INFORMATION
  Report Type: Spontaneous
  Country: CA (occurrence: CA)
  Receive Date: 20230426
  Receipt Date: 20250513
  Transmission Date: 20250717
  Serious: Yes (Other)
  Sender: PFIZER
  Company Number: CA-PFIZER INC-202300146047

PATIENT
  Age: 63 Year
  Sex: Female
  Weight: 109.4 kg

DRUGS (16)
  1. RUXIENCE [Suspect]
     Active Substance: RITUXIMAB-PVVR
     Indication: Rheumatoid arthritis
     Route: 042
     Dates: start: 20230404
  2. RUXIENCE [Suspect]
     Active Substance: RITUXIMAB-PVVR
     Route: 042
     Dates: start: 20230417
  3. RUXIENCE [Suspect]
     Active Substance: RITUXIMAB-PVVR
     Route: 042
     Dates: start: 20231212
  4. RUXIENCE [Suspect]
     Active Substance: RITUXIMAB-PVVR
     Route: 042
     Dates: start: 20240130
  5. RUXIENCE [Suspect]
     Active Substance: RITUXIMAB-PVVR
     Route: 042
     Dates: start: 20241025
  6. RUXIENCE [Suspect]
     Active Substance: RITUXIMAB-PVVR
     Route: 042
     Dates: start: 20241112
  7. DAYVIGO [Concomitant]
     Active Substance: LEMBOREXANT
  8. DULOXETINE [Concomitant]
     Active Substance: DULOXETINE
  9. LEMBOREXANT [Concomitant]
     Active Substance: LEMBOREXANT
  10. INSULIN ASPART [Concomitant]
     Active Substance: INSULIN ASPART
  11. INSULIN ASPART [Concomitant]
     Active Substance: INSULIN ASPART
  12. OZEMPIC [Concomitant]
     Active Substance: SEMAGLUTIDE
  13. PANTOPRAZOLE [Concomitant]
     Active Substance: PANTOPRAZOLE
  14. PREGABALIN [Concomitant]
     Active Substance: PREGABALIN
  15. RAMIPRIL [Concomitant]
     Active Substance: RAMIPRIL
  16. SEMAGLUTIDE [Concomitant]
     Active Substance: SEMAGLUTIDE

REACTIONS (25)
  - Blood glucose increased [Recovered/Resolved]
  - Carpal tunnel decompression [Unknown]
  - Hysterectomy [Unknown]
  - Therapeutic product effect incomplete [Unknown]
  - Throat irritation [Recovered/Resolved]
  - Ear pruritus [Recovered/Resolved]
  - Chills [Recovered/Resolved]
  - Pain in extremity [Recovered/Resolved]
  - Fibromyalgia [Recovered/Resolved]
  - Blood pressure abnormal [Unknown]
  - Malaise [Recovering/Resolving]
  - Throat irritation [Recovering/Resolving]
  - Chills [Recovering/Resolving]
  - Pyrexia [Recovered/Resolved]
  - Cough [Not Recovered/Not Resolved]
  - Vomiting [Recovering/Resolving]
  - Dysphonia [Recovering/Resolving]
  - Headache [Recovered/Resolved]
  - Nausea [Recovering/Resolving]
  - Infusion related reaction [Unknown]
  - Illness [Unknown]
  - Fall [Not Recovered/Not Resolved]
  - Muscle spasms [Unknown]
  - Infection [Unknown]
  - Inappropriate schedule of product administration [Unknown]

NARRATIVE: CASE EVENT DATE: 20230101
